FAERS Safety Report 8111443-7 (Version None)
Quarter: 2012Q1

REPORT INFORMATION
  Report Type: 
  Country: None (occurrence: None)
  Receive Date: 20120203
  Receipt Date: 20111215
  Transmission Date: 20120608
  Serious: No
  Sender: FDA-Public Use
  Company Number: US-GLAXOSMITHKLINE-A0958297A

PATIENT
  Age: 20 Year
  Sex: Male

DRUGS (3)
  1. LAMICTAL [Suspect]
     Indication: EPILEPSY
     Dosage: 200MG TWICE PER DAY
     Route: 048
     Dates: start: 20110101
  2. KEPPRA [Concomitant]
  3. ZONISAMIDE [Concomitant]

REACTIONS (2)
  - FATIGUE [None]
  - CONSTIPATION [None]
